FAERS Safety Report 9730267 (Version 3)
Quarter: 2014Q2

REPORT INFORMATION
  Report Type: Report from Study
  Country: DE (occurrence: DE)
  Receive Date: 20131202
  Receipt Date: 20140617
  Transmission Date: 20141212
  Serious: Yes (Hospitalization)
  Sender: FDA-Public Use
  Company Number: PHHY2013DE139218

PATIENT
  Sex: Female

DRUGS (23)
  1. FTY 720 [Suspect]
     Indication: MULTIPLE SCLEROSIS
     Dosage: 0.5 MG, QD
     Route: 048
     Dates: start: 20111115, end: 20120508
  2. FTY 720 [Suspect]
     Dosage: 0.5 MG, QD
     Route: 048
     Dates: start: 20121008, end: 20130829
  3. FTY 720 [Suspect]
     Dosage: 0.5 MG, QD
     Route: 048
     Dates: start: 20130910
  4. BERLTHYROX [Concomitant]
     Indication: HYPOTHYROIDISM
     Dosage: 100 MG, 1-0-0
     Route: 048
     Dates: start: 20050630
  5. BISOPROLOL [Concomitant]
     Indication: HYPERTENSION
     Dosage: 5 MG, 1-0-0
     Route: 048
     Dates: start: 20070630
  6. RAMIPRIL [Concomitant]
     Indication: HYPERTENSION
     Dosage: 5 MG, 1-0-0
     Route: 048
     Dates: start: 20120710, end: 201306
  7. RAMIPRIL [Concomitant]
     Dosage: 5 MG, 1-0-1
     Route: 048
     Dates: start: 201306
  8. CYMBALTA [Concomitant]
     Indication: PAIN
     Dosage: 30 MG, 1-0-0
     Route: 048
     Dates: start: 20120314
  9. BACLOFEN [Concomitant]
     Indication: MUSCLE SPASTICITY
     Dosage: 10 MG, 1-1-2
     Route: 048
     Dates: start: 20120213, end: 20130103
  10. BACLOFEN [Concomitant]
     Dosage: 10 MG, 1-1-3
     Route: 048
     Dates: start: 20130104, end: 20130613
  11. BACLOFEN [Concomitant]
     Dosage: 10 MG, 2-1-3
     Route: 048
     Dates: start: 20130614
  12. LYRICA [Concomitant]
     Indication: PAIN
     Dosage: 75 MG, 0-0-1
     Route: 048
     Dates: start: 20121105, end: 20121112
  13. LYRICA [Concomitant]
     Dosage: 25 MG, 0-0-1
     Route: 048
     Dates: start: 20121119, end: 20121203
  14. GABAPENTIN [Concomitant]
     Indication: PAIN
     Dosage: 100 MG, 2-0-2
     Route: 048
     Dates: start: 20121008, end: 20121105
  15. GABAPENTIN [Concomitant]
     Dosage: 200 MG, 3X1
     Route: 048
     Dates: start: 20130904, end: 20130923
  16. GABAPENTIN [Concomitant]
     Dosage: 300 MG, 1-1-1
     Route: 048
     Dates: start: 20130924, end: 20131023
  17. NEXIUM 1-2-3 [Concomitant]
     Dosage: 40 MG, 1-0-0
     Route: 048
     Dates: start: 20130123, end: 20130130
  18. PANTOZOL [Concomitant]
     Dosage: 40 MG, 1-0-0
     Route: 058
     Dates: start: 20130625, end: 20130630
  19. PANTOZOL [Concomitant]
     Dosage: 40 MG, 1-0-1
     Route: 048
     Dates: start: 20131005
  20. VOLON A [Concomitant]
     Indication: MULTIPLE SCLEROSIS
     Dosage: 40 MG, EVERY TWO DAYS
     Dates: start: 20130124, end: 20130126
  21. URBASON                                 /GFR/ [Concomitant]
     Indication: MULTIPLE SCLEROSIS RELAPSE
     Dosage: 1000 MG, 1-0-0
     Route: 042
     Dates: start: 20130625, end: 20130630
  22. LERCANIDIPINE [Concomitant]
     Indication: HYPERTENSION
     Dosage: 10 MG, 1-0-0
     Route: 048
     Dates: start: 201306
  23. VERSATIS [Concomitant]
     Indication: PAIN
     Dosage: 700 MG, 1-0-1
     Route: 062
     Dates: start: 20130923, end: 20131003

REACTIONS (1)
  - Sciatica [Recovered/Resolved]
